FAERS Safety Report 14761343 (Version 1)
Quarter: 2018Q2

REPORT INFORMATION
  Report Type: Report from Study
  Country: BR (occurrence: BR)
  Receive Date: 20180415
  Receipt Date: 20180415
  Transmission Date: 20180711
  Serious: Yes (Other)
  Sender: FDA-Public Use
  Company Number: PHHY2018BR062626

PATIENT
  Age: 61 Year
  Sex: Male
  Weight: 136 kg

DRUGS (1)
  1. DIOVAN HCT [Suspect]
     Active Substance: HYDROCHLOROTHIAZIDE\VALSARTAN
     Indication: HYPERTENSION
     Dosage: 1 DF (25 MG HYDROCHLOROTHIAZIDE/320MG VALSARTAN), QD
     Route: 048

REACTIONS (3)
  - Pain [Recovering/Resolving]
  - Infarction [Recovering/Resolving]
  - Diabetes mellitus [Unknown]

NARRATIVE: CASE EVENT DATE: 20180329
